FAERS Safety Report 8773287 (Version 2)
Quarter: 2013Q4

REPORT INFORMATION
  Report Type: Spontaneous
  Country: US (occurrence: US)
  Receive Date: 20120907
  Receipt Date: 20131101
  Transmission Date: 20140711
  Serious: No
  Sender: FDA-Public Use
  Company Number: US-009507513-1208USA001193

PATIENT
  Age: 43 Year
  Sex: Female

DRUGS (3)
  1. VICTRELIS [Suspect]
     Indication: HEPATITIS C
     Dosage: VICTRELIS CAPSULE 200 MG
     Route: 048
     Dates: start: 20120503
  2. PEGINTRON [Suspect]
     Dosage: 150 MICROGRAM, PEGINTRON INJECTION 150
     Route: 058
     Dates: start: 20120503
  3. RIBASPHERE [Concomitant]

REACTIONS (2)
  - Anorectal discomfort [Not Recovered/Not Resolved]
  - Decreased appetite [Not Recovered/Not Resolved]
